FAERS Safety Report 6131211-5 (Version None)
Quarter: 2009Q1

REPORT INFORMATION
  Report Type: 
  Country: None (occurrence: None)
  Receive Date: 20090325
  Receipt Date: 20090316
  Transmission Date: 20090719
  Serious: Yes (Hospitalization)
  Sender: FDA-Public Use
  Company Number: US-ELI_LILLY_AND_COMPANY-US200903005232

PATIENT
  Sex: Female
  Weight: 84 kg

DRUGS (10)
  1. HUMULIN R [Suspect]
     Indication: TYPE 2 DIABETES MELLITUS
     Dosage: 20 U, DAILY (1/D)
  2. EXUBERA [Concomitant]
     Indication: TYPE 2 DIABETES MELLITUS
     Dosage: 2.42 MG, EACH MORNING
     Route: 055
     Dates: start: 20030304, end: 20040107
  3. EXUBERA [Concomitant]
     Dosage: 2.44 MG, DAILY (1/D)
  4. EXUBERA [Concomitant]
     Dosage: 2.7 MG, DAILY (1/D)
  5. EXUBERA [Concomitant]
     Dosage: 0.92 MG, EACH EVENING
  6. ISOPHANE INSULIN [Concomitant]
     Indication: TYPE 2 DIABETES MELLITUS
     Dosage: 42 U, EACH MORNING
     Dates: start: 20030304
  7. ISOPHANE INSULIN [Concomitant]
     Dosage: 30 U, EACH EVENING
     Dates: start: 20030304
  8. INSULIN [Concomitant]
     Route: 055
  9. NORVASC [Concomitant]
     Dates: start: 20030128
  10. AMLODIPINE [Concomitant]
     Indication: HYPERTENSION

REACTIONS (5)
  - ASTHMA [None]
  - COUGH [None]
  - DYSPHONIA [None]
  - DYSPNOEA EXERTIONAL [None]
  - WHEEZING [None]
